FAERS Safety Report 7897511-3 (Version None)
Quarter: 2011Q4

REPORT INFORMATION
  Report Type: 
  Country: None (occurrence: None)
  Receive Date: 20111107
  Receipt Date: 20111027
  Transmission Date: 20120403
  Serious: Yes (Hospitalization, Other)
  Sender: FDA-Public Use
  Company Number: FR-PFIZER INC-2011269175

PATIENT
  Age: 86 Year
  Sex: Female

DRUGS (5)
  1. EUPRESSYL [Suspect]
     Indication: HYPERTENSION
     Dosage: UNK
     Route: 048
  2. PLAVIX [Concomitant]
     Dosage: 75 MG, UNK
     Route: 048
  3. PANTOPRAZOLE SODIUM [Suspect]
     Indication: OESOPHAGITIS
     Dosage: UNK
     Route: 048
  4. COVERAM [Suspect]
     Indication: HYPERTENSION
     Route: 048
  5. ESCITALOPRAM OXALATE [Suspect]
     Indication: ANXIETY
     Route: 048

REACTIONS (3)
  - HYPOTENSION [None]
  - FALL [None]
  - LOSS OF CONSCIOUSNESS [None]
